FAERS Safety Report 13089097 (Version 1)
Quarter: 2017Q1

REPORT INFORMATION
  Report Type: Spontaneous
  Country: US (occurrence: US)
  Receive Date: 20170104
  Receipt Date: 20170104
  Transmission Date: 20170428
  Serious: No
  Sender: FDA-Public Use
  Company Number: None

PATIENT
  Age: 61 Year
  Sex: Female
  Weight: 83.2 kg

DRUGS (10)
  1. PROPOFOL. [Suspect]
     Active Substance: PROPOFOL
  2. FISH OIL [Concomitant]
     Active Substance: FISH OIL
  3. ZOFRAN [Suspect]
     Active Substance: ONDANSETRON HYDROCHLORIDE
  4. VITAMIN D3 [Concomitant]
     Active Substance: CHOLECALCIFEROL
  5. KETAMINE [Suspect]
     Active Substance: KETAMINE
     Indication: SURGERY
     Dates: start: 20161227, end: 20161227
  6. VERSED [Suspect]
     Active Substance: MIDAZOLAM HYDROCHLORIDE
  7. VITAMIN [Concomitant]
     Active Substance: VITAMINS
  8. REGLAN [Suspect]
     Active Substance: METOCLOPRAMIDE HYDROCHLORIDE
  9. MEDFORMEN [Concomitant]
  10. TURMERICE [Concomitant]

REACTIONS (7)
  - Photopsia [None]
  - Vertigo [None]
  - Heart rate decreased [None]
  - Diplopia [None]
  - Heart rate increased [None]
  - Accommodation disorder [None]
  - Dizziness [None]

NARRATIVE: CASE EVENT DATE: 20161227
